FAERS Safety Report 6419285-5 (Version None)
Quarter: 2009Q4

REPORT INFORMATION
  Report Type: 
  Country: None (occurrence: None)
  Receive Date: 20091029
  Receipt Date: 20091020
  Transmission Date: 20100525
  Serious: Yes (Hospitalization)
  Sender: FDA-Public Use
  Company Number: US-KINGPHARMUSA00001-K200901301

PATIENT
  Age: 68 Year
  Sex: Female

DRUGS (10)
  1. ALTACE [Suspect]
     Dosage: 1 DF, QD
     Route: 048
  2. LEVEMIR [Suspect]
     Dosage: 30 IU, QD
     Route: 058
     Dates: end: 20090909
  3. NOVOMIX 30 [Suspect]
     Dosage: 18 IU, QD
     Route: 058
     Dates: end: 20090909
  4. NOVORAPID [Suspect]
     Dosage: UNK
     Route: 058
     Dates: end: 20090909
  5. DILATREND [Suspect]
     Dosage: 25 MG, QD
     Route: 048
  6. ASPIRIN [Suspect]
     Dosage: 1 DF, QD
     Route: 048
  7. PANTOPRAZOLE [Concomitant]
     Dosage: UNK
  8. TORASEM [Concomitant]
     Dosage: UNK
  9. PRAVALOTIN [Concomitant]
     Dosage: UNK
  10. EUTHROID-1 [Concomitant]
     Dosage: UNK

REACTIONS (4)
  - DRUG ADMINISTRATION ERROR [None]
  - HYPOGLYCAEMIA [None]
  - INCORRECT DOSE ADMINISTERED [None]
  - LOSS OF CONSCIOUSNESS [None]
